FAERS Safety Report 9378953 (Version 2)
Quarter: 2013Q3

REPORT INFORMATION
  Report Type: Spontaneous
  Country: US (occurrence: US)
  Receive Date: 20130702
  Receipt Date: 20130821
  Transmission Date: 20140515
  Serious: Yes (Other)
  Sender: FDA-Public Use
  Company Number: US-SANOFI-AVENTIS-2013SA065427

PATIENT
  Age: 56 Year
  Sex: Female
  Weight: 73.48 kg

DRUGS (7)
  1. LANTUS SOLOSTAR [Suspect]
     Indication: TYPE 2 DIABETES MELLITUS
     Dosage: THERAPY START DATE - 1-2 YEARS DOSE:15 UNIT(S)
     Route: 051
     Dates: start: 2011, end: 20130704
  2. LANTUS SOLOSTAR [Suspect]
     Indication: TYPE 2 DIABETES MELLITUS
     Dosage: DOSE:10 UNIT(S)
     Route: 051
     Dates: start: 20130715
  3. SOLOSTAR [Concomitant]
     Indication: TYPE 2 DIABETES MELLITUS
     Dosage: THERAPY START DATE - 1-2 YEARS
  4. NOVOLOG [Concomitant]
     Indication: DIABETES MELLITUS
     Dosage: DOSE:5 UNIT(S)
     Dates: start: 2010
  5. LISINOPRIL [Concomitant]
     Indication: RENAL DISORDER
     Dosage: TAKEN FROM: CANNOT READABLE.
  6. PROZAC [Concomitant]
     Indication: POST-TRAUMATIC STRESS DISORDER
     Dates: start: 2013
  7. DEPAKOTE [Concomitant]
     Indication: POST-TRAUMATIC STRESS DISORDER
     Dates: start: 2002

REACTIONS (2)
  - Pituitary tumour [Unknown]
  - Visual impairment [Unknown]
